FAERS Safety Report 10243092 (Version 1)
Quarter: 2014Q2

REPORT INFORMATION
  Report Type: Other
  Country: DE (occurrence: DE)
  Receive Date: 20140618
  Receipt Date: 20140618
  Transmission Date: 20141212
  Serious: No
  Sender: FDA-Public Use
  Company Number: DE-LUPIN PHARMACEUTICALS INC.-E2B_00001187

PATIENT
  Age: 78 Year
  Sex: Female
  Weight: 68 kg

DRUGS (2)
  1. SIMVASTATIN [Suspect]
     Indication: HYPERLIPIDAEMIA
     Route: 048
  2. EZETROL [Suspect]
     Indication: HYPERLIPIDAEMIA
     Route: 048
     Dates: start: 20121130, end: 20130130

REACTIONS (2)
  - Myalgia [Recovered/Resolved]
  - Rash [Recovered/Resolved]
